FAERS Safety Report 26035530 (Version 1)
Quarter: 2025Q4

REPORT INFORMATION
  Report Type: Spontaneous
  Country: US (occurrence: US)
  Receive Date: 20251112
  Receipt Date: 20251112
  Transmission Date: 20260118
  Serious: Yes (Other)
  Sender: HIKMA
  Company Number: US-HIKMA PHARMACEUTICALS USA INC.-US-H14001-24-07082

PATIENT

DRUGS (3)
  1. PREDNISONE [Suspect]
     Active Substance: PREDNISONE
     Indication: Lip swelling
     Dosage: UNKNOWN
     Route: 065
  2. PREDNISONE [Suspect]
     Active Substance: PREDNISONE
     Indication: Urticaria
  3. PREDNISONE [Suspect]
     Active Substance: PREDNISONE
     Indication: Swollen tongue

REACTIONS (3)
  - Suicidal ideation [Unknown]
  - Feeling of despair [Unknown]
  - Drug ineffective [Unknown]
